FAERS Safety Report 21312224 (Version 1)
Quarter: 2022Q3

REPORT INFORMATION
  Report Type: Spontaneous
  Country: US (occurrence: None)
  Receive Date: 20220909
  Receipt Date: 20220909
  Transmission Date: 20221027
  Serious: No
  Sender: FDA-Public Use
  Company Number: US-ARIS GLOBAL-202205-0807

PATIENT
  Sex: Female

DRUGS (10)
  1. OXERVATE [Suspect]
     Active Substance: CENEGERMIN-BKBJ
     Indication: Neurotrophic keratopathy
     Route: 047
     Dates: start: 20220317
  2. DUREZOL [Concomitant]
     Active Substance: DIFLUPREDNATE
  3. HERBALS\TURMERIC [Concomitant]
     Active Substance: HERBALS\TURMERIC
     Dosage: 450MG-50MG
  4. FLAXSEED [Concomitant]
     Active Substance: FLAX SEED
  5. B12 ACTIVE [Concomitant]
  6. FISH OIL-VIT D3 [Concomitant]
     Dosage: 120MG-1000
  7. ESTRADIOL-NORETHINDRONE ACETAT [Concomitant]
  8. HYDROCHLOROTHIAZIDE [Concomitant]
     Active Substance: HYDROCHLOROTHIAZIDE
  9. MEDROXYPROGESTERONE ACETATE [Concomitant]
     Active Substance: MEDROXYPROGESTERONE ACETATE
  10. QUINAPRIL-HYDROCHLOROTHIAZIDE [Concomitant]

REACTIONS (2)
  - Wrong technique in product usage process [Unknown]
  - Photophobia [Unknown]
